FAERS Safety Report 15928807 (Version 1)
Quarter: 2019Q1

REPORT INFORMATION
  Report Type: Spontaneous
  Country: US (occurrence: US)
  Receive Date: 20190206
  Receipt Date: 20190206
  Transmission Date: 20190417
  Serious: Yes (Hospitalization)
  Sender: FDA-Public Use
  Company Number: US-ANIPHARMA-2019-US-001256

PATIENT
  Age: 52 Year
  Sex: Male

DRUGS (6)
  1. CLONAZEPAM. [Concomitant]
     Active Substance: CLONAZEPAM
  2. LISDEXAMFETAMINE [Suspect]
     Active Substance: LISDEXAMFETAMINE
     Indication: PRODUCT USED FOR UNKNOWN INDICATION
     Dosage: 40 MG DAILY
  3. FLUOXETINE HYDROCHLORIDE (NON-SPECIFIC) [Suspect]
     Active Substance: FLUOXETINE HYDROCHLORIDE
     Indication: PRODUCT USED FOR UNKNOWN INDICATION
     Dosage: 60 MG DAILY
  4. OLANZAPINE. [Concomitant]
     Active Substance: OLANZAPINE
  5. FLUCONAZOLE (NON-SPECIFIC) [Suspect]
     Active Substance: FLUCONAZOLE
     Indication: ONYCHOMYCOSIS
     Dosage: 200 MG WEEKLY
  6. MELATONIN [Suspect]
     Active Substance: MELATONIN
     Indication: INSOMNIA
     Dosage: 5 MG AT NIGHT
     Route: 048

REACTIONS (2)
  - Drug interaction [Recovered/Resolved]
  - Choreoathetosis [Recovered/Resolved]
